FAERS Safety Report 14078795 (Version 1)
Quarter: 2017Q4

REPORT INFORMATION
  Report Type: Spontaneous
  Country: IT (occurrence: IT)
  Receive Date: 20171012
  Receipt Date: 20171012
  Transmission Date: 20180321
  Serious: Yes (Hospitalization)
  Sender: FDA-Public Use
  Company Number: IT-TEVA-813840ACC

PATIENT
  Age: 72 Year
  Sex: Female

DRUGS (5)
  1. MEDROL - 4 MG COMPRESSE [Concomitant]
     Indication: PRODUCT USED FOR UNKNOWN INDICATION
  2. XARELTO [Concomitant]
     Active Substance: RIVAROXABAN
     Indication: PRODUCT USED FOR UNKNOWN INDICATION
  3. ALTIAZEM - 120 MG COMPRESSE A RILASCIO PROLUNGATO [Concomitant]
     Indication: PRODUCT USED FOR UNKNOWN INDICATION
  4. RISEDRONATO TEVA ITALIA - 35 MG COMPRESSE RIVESTITE CON FILM [Suspect]
     Active Substance: RISEDRONATE SODIUM
     Indication: OSTEOPOROSIS
     Route: 048
     Dates: start: 20170930, end: 20170930
  5. IMMUTREX - 10 MG SOLUZIONE INIETTABILE [Concomitant]
     Indication: PRODUCT USED FOR UNKNOWN INDICATION

REACTIONS (4)
  - Vertigo [Unknown]
  - Atrial fibrillation [Unknown]
  - Hypertension [Unknown]
  - Palpitations [Unknown]

NARRATIVE: CASE EVENT DATE: 20170930
